FAERS Safety Report 24692697 (Version 2)
Quarter: 2025Q1

REPORT INFORMATION
  Report Type: Spontaneous
  Country: US (occurrence: US)
  Receive Date: 20241203
  Receipt Date: 20250103
  Transmission Date: 20250409
  Serious: No
  Sender: PFIZER
  Company Number: US-PFIZER INC-202400307127

PATIENT
  Age: 14 Year
  Sex: Male

DRUGS (3)
  1. GENOTROPIN [Suspect]
     Active Substance: SOMATROPIN
     Indication: Short stature
     Dosage: 2.4 MG, DAILY
  2. GENOTROPIN [Suspect]
     Active Substance: SOMATROPIN
     Indication: Growth retardation
  3. GENOTROPIN [Suspect]
     Active Substance: SOMATROPIN
     Indication: Developmental delay

REACTIONS (2)
  - Incorrect dose administered [Unknown]
  - Injection site discharge [Unknown]

NARRATIVE: CASE EVENT DATE: 20241126
